FAERS Safety Report 6714991-7 (Version None)
Quarter: 2010Q2

REPORT INFORMATION
  Report Type: 
  Country: None (occurrence: None)
  Receive Date: 20100507
  Receipt Date: 20100428
  Transmission Date: 20101027
  Serious: Yes (Hospitalization, Other)
  Sender: FDA-Public Use
  Company Number: FI-JNJFOC-20100402127

PATIENT
  Age: 63 Year
  Sex: Female

DRUGS (3)
  1. CAELYX [Suspect]
     Indication: MULTIPLE MYELOMA
     Route: 042
  2. BORTEZOMIB [Concomitant]
     Route: 065
  3. DEXAMETHASONE [Concomitant]
     Route: 065

REACTIONS (2)
  - OEDEMA PERIPHERAL [None]
  - PYREXIA [None]
